FAERS Safety Report 5125669-8 (Version None)
Quarter: 2006Q4

REPORT INFORMATION
  Report Type: 
  Country: None (occurrence: None)
  Receive Date: 20061006
  Receipt Date: 20060921
  Transmission Date: 20070319
  Serious: Yes (Death)
  Sender: FDA-Public Use
  Company Number: SPV1-2006-00873

PATIENT
  Sex: Male

DRUGS (1)
  1. ADDERALL 10 [Suspect]

REACTIONS (1)
  - HYPONATRAEMIA [None]
